FAERS Safety Report 17469548 (Version 1)
Quarter: 2020Q1

REPORT INFORMATION
  Report Type: Report from Study
  Country: US (occurrence: US)
  Receive Date: 20200227
  Receipt Date: 20200227
  Transmission Date: 20200409
  Serious: Yes (Other)
  Sender: FDA-Public Use
  Company Number: US-GILEAD-2020-0449461

PATIENT
  Age: 50 Year
  Sex: Female

DRUGS (27)
  1. METOCLOPRAM [Concomitant]
     Active Substance: METOCLOPRAMIDE
  2. POLYETHYLENE GLYCOL [Concomitant]
     Active Substance: POLYETHYLENE GLYCOLS
  3. NYSTATIN. [Concomitant]
     Active Substance: NYSTATIN
  4. METOPROLOL TARTRATE. [Concomitant]
     Active Substance: METOPROLOL TARTRATE
  5. BD PEN NEEDL MIS [Concomitant]
  6. SCOPOLAMINE DIS [Concomitant]
  7. AZITHROMYCIN ANHYDROUS. [Concomitant]
     Active Substance: AZITHROMYCIN ANHYDROUS
  8. PRENATAL VITAMINS [MINERALS NOS;VITAMINS NOS] [Concomitant]
     Active Substance: MINERALS\VITAMINS
  9. TACROLIMUS. [Concomitant]
     Active Substance: TACROLIMUS
  10. LINEZOLID. [Concomitant]
     Active Substance: LINEZOLID
  11. PARI [Concomitant]
  12. LANTUS [Concomitant]
     Active Substance: INSULIN GLARGINE
  13. OMEPRAZOLE. [Concomitant]
     Active Substance: OMEPRAZOLE
  14. DILTIAZEM. [Concomitant]
     Active Substance: DILTIAZEM
  15. HUMALOG [Concomitant]
     Active Substance: INSULIN LISPRO
  16. MYCOPHENOLATE [Concomitant]
     Active Substance: MYCOPHENOLIC ACID
  17. PREDNISONE. [Concomitant]
     Active Substance: PREDNISONE
  18. ONETOUCH TES ULTRA [Concomitant]
  19. AZTREONAM LYSINE [Suspect]
     Active Substance: AZTREONAM LYSINE
     Indication: CYSTIC FIBROSIS
     Dosage: 75 MG, BID  ( OR TID AS DIRECTED BY MD) CONTINUOUSLY
     Route: 055
     Dates: start: 20160816
  20. SMZ-TMP [Concomitant]
     Active Substance: SULFAMETHOXAZOLE\TRIMETHOPRIM
  21. AMOXICILLIN. [Concomitant]
     Active Substance: AMOXICILLIN
  22. CREON [Concomitant]
     Active Substance: PANCRELIPASE AMYLASE\PANCRELIPASE LIPASE\PANCRELIPASE PROTEASE
  23. METOCLOPRAMIDE. [Concomitant]
     Active Substance: METOCLOPRAMIDE
  24. PRENATAL [Concomitant]
     Active Substance: VITAMINS
  25. SERTRALINE [Concomitant]
     Active Substance: SERTRALINE HYDROCHLORIDE
  26. ATORVASTATIN [Concomitant]
     Active Substance: ATORVASTATIN
  27. LEVOTHYROXINE. [Concomitant]
     Active Substance: LEVOTHYROXINE

REACTIONS (5)
  - Sinusitis [Unknown]
  - Pneumonia staphylococcal [Unknown]
  - Wheezing [Not Recovered/Not Resolved]
  - Staphylococcal infection [Unknown]
  - Off label use [Unknown]

NARRATIVE: CASE EVENT DATE: 20160816
